FAERS Safety Report 18774239 (Version 1)
Quarter: 2021Q1

REPORT INFORMATION
  Report Type: Spontaneous
  Country: US (occurrence: US)
  Receive Date: 20210122
  Receipt Date: 20210122
  Transmission Date: 20210419
  Serious: Yes (Life-Threatening, Other)
  Sender: FDA-Public Use
  Company Number: None

PATIENT
  Age: 75 Year
  Sex: Female

DRUGS (1)
  1. NIFEDIPINE ER CC [Suspect]
     Active Substance: NIFEDIPINE
     Dates: start: 20201201

REACTIONS (11)
  - Memory impairment [None]
  - Pain [None]
  - Myalgia [None]
  - Constipation [None]
  - Erythema [None]
  - Pruritus [None]
  - Peripheral swelling [None]
  - Vision blurred [None]
  - Bone pain [None]
  - Paraesthesia [None]
  - Urine odour abnormal [None]

NARRATIVE: CASE EVENT DATE: 20201201
